FAERS Safety Report 20870599 (Version 2)
Quarter: 2022Q3

REPORT INFORMATION
  Report Type: Report from Study
  Country: JP (occurrence: JP)
  Receive Date: 20220525
  Receipt Date: 20220714
  Transmission Date: 20221026
  Serious: No
  Sender: FDA-Public Use
  Company Number: JP-MSD-2205JPN001800J

PATIENT
  Age: 39 Year
  Sex: Female
  Weight: 87.2 kg

DRUGS (2)
  1. MOLNUPIRAVIR [Suspect]
     Active Substance: MOLNUPIRAVIR
     Indication: COVID-19 treatment
     Dosage: 800 MILLIGRAM, BID
     Route: 048
     Dates: start: 20220318, end: 20220322
  2. MEROPENEM [Concomitant]
     Active Substance: MEROPENEM
     Indication: COVID-19 treatment
     Dosage: UNK
     Route: 065
     Dates: start: 202203

REACTIONS (2)
  - Product use issue [Unknown]
  - No adverse event [Unknown]

NARRATIVE: CASE EVENT DATE: 20220318
